FAERS Safety Report 16122801 (Version 1)
Quarter: 2019Q1

REPORT INFORMATION
  Report Type: Spontaneous
  Country: FR (occurrence: FR)
  Receive Date: 20190327
  Receipt Date: 20190327
  Transmission Date: 20190418
  Serious: Yes (Hospitalization)
  Sender: FDA-Public Use
  Company Number: FR-TEVA-2019-FR-1029801

PATIENT
  Age: 70 Year
  Sex: Female

DRUGS (2)
  1. DOXYCYCLINE. [Suspect]
     Active Substance: DOXYCYCLINE
     Indication: INFECTION
     Route: 048
     Dates: start: 201807, end: 201807
  2. LINEZOLIDE [Suspect]
     Active Substance: LINEZOLID
     Indication: INFECTION
     Route: 048
     Dates: start: 201807, end: 201810

REACTIONS (2)
  - Pancytopenia [Recovered/Resolved]
  - Renal failure [Recovered/Resolved]

NARRATIVE: CASE EVENT DATE: 201807
